FAERS Safety Report 9240711 (Version 1)
Quarter: 2013Q1

REPORT INFORMATION
  Report Type: Spontaneous
  Country: US (occurrence: None)
  Receive Date: 20121120
  Receipt Date: 20121120
  Transmission Date: 20140127
  Serious: No
  Sender: FDA-Public Use
  Company Number: 1000037654

PATIENT
  Age: 67 Year
  Sex: Female

DRUGS (7)
  1. VIIBRYD (VILAZODONE) [Suspect]
     Dates: start: 201207
  2. DEPAKOTE (VALPROATE SEMISODIUM) [Concomitant]
  3. LAMICTAL (LAMOTRIGINE) [Concomitant]
  4. WELLBUTRIN (BUPROPION) [Concomitant]
  5. SEROQUEL (QUETIAPINE FUMURATE) [Concomitant]
  6. MULTIVITAMIN (MULTIVITAMINS) [Concomitant]
  7. CALCIUM [Concomitant]

REACTIONS (1)
  - Vision blurred [None]
